FAERS Safety Report 17274696 (Version 1)
Quarter: 2020Q1

REPORT INFORMATION
  Report Type: Report from Study
  Country: IN (occurrence: IN)
  Receive Date: 20200115
  Receipt Date: 20200115
  Transmission Date: 20200409
  Serious: Yes (Other)
  Sender: FDA-Public Use
  Company Number: IN-AMGEN-INDSL2019197337

PATIENT
  Age: 55 Year
  Sex: Male

DRUGS (2)
  1. VECTIBIX [Suspect]
     Active Substance: PANITUMUMAB
     Indication: COLORECTAL CANCER METASTATIC
     Dosage: 4 VIALS (UNKNOWN FREQUENCY)
     Route: 042
     Dates: start: 20190803
  2. VECTIBIX [Suspect]
     Active Substance: PANITUMUMAB
     Dosage: UNK, Q3WK, 4 VIALS- ONE CYCLE
     Route: 042

REACTIONS (8)
  - Dyspepsia [Recovered/Resolved]
  - Mouth ulceration [Not Recovered/Not Resolved]
  - Decreased appetite [Unknown]
  - Pharyngitis [Not Recovered/Not Resolved]
  - Vomiting [Not Recovered/Not Resolved]
  - Nausea [Not Recovered/Not Resolved]
  - Asthenia [Not Recovered/Not Resolved]
  - Dehydration [Not Recovered/Not Resolved]

NARRATIVE: CASE EVENT DATE: 2019
